FAERS Safety Report 12266732 (Version 1)
Quarter: 2016Q2

REPORT INFORMATION
  Report Type: Spontaneous
  Country: US (occurrence: None)
  Receive Date: 20160413
  Receipt Date: 20160413
  Transmission Date: 20160815
  Serious: Yes (Disabling)
  Sender: FDA-Public Use
  Company Number: None

PATIENT
  Age: 61 Year
  Sex: Female
  Weight: 78.93 kg

DRUGS (15)
  1. GABAPENTIN. [Concomitant]
     Active Substance: GABAPENTIN
  2. SIMVASTATIN. [Concomitant]
     Active Substance: SIMVASTATIN
  3. MAGNESIUM [Concomitant]
     Active Substance: MAGNESIUM
  4. PROPANOLOL [Concomitant]
     Active Substance: PROPRANOLOL HYDROCHLORIDE
  5. FLOVENT [Concomitant]
     Active Substance: FLUTICASONE PROPIONATE
  6. OLANZAPINE. [Concomitant]
     Active Substance: OLANZAPINE
  7. FLONASE [Concomitant]
     Active Substance: FLUTICASONE PROPIONATE
  8. NAPROXEN. [Concomitant]
     Active Substance: NAPROXEN
  9. LAMOTRIGINE. [Concomitant]
     Active Substance: LAMOTRIGINE
  10. CALCIUM CARBONATE. [Concomitant]
     Active Substance: CALCIUM CARBONATE
  11. VITAMIN D [Concomitant]
     Active Substance: CHOLECALCIFEROL
  12. OLANZAPINE. [Suspect]
     Active Substance: OLANZAPINE
     Indication: SCHIZOAFFECTIVE DISORDER
     Dosage: 7.5 MG ONE PILL EVERY NIGHT BY MOUTH
     Route: 048
     Dates: start: 20130629
  13. OLANZAPINE. [Suspect]
     Active Substance: OLANZAPINE
     Indication: BIPOLAR I DISORDER
     Dosage: 7.5 MG ONE PILL EVERY NIGHT BY MOUTH
     Route: 048
     Dates: start: 20130629
  14. PROAIR HFA [Concomitant]
     Active Substance: ALBUTEROL SULFATE
  15. FISH OIL [Concomitant]
     Active Substance: FISH OIL

REACTIONS (4)
  - Burning sensation [None]
  - Headache [None]
  - Tinnitus [None]
  - Somnolence [None]

NARRATIVE: CASE EVENT DATE: 20160224
